FAERS Safety Report 23995947 (Version 1)
Quarter: 2024Q2

REPORT INFORMATION
  Report Type: Spontaneous
  Country: US (occurrence: None)
  Receive Date: 20240619
  Receipt Date: 20240619
  Transmission Date: 20240717
  Serious: Yes (Death)
  Sender: FDA-Public Use
  Company Number: None

PATIENT
  Age: 67 Year
  Sex: Female

DRUGS (1)
  1. VENCLEXTA [Suspect]
     Active Substance: VENETOCLAX
     Indication: Chronic myelomonocytic leukaemia
     Dosage: 100MG QD FOR 14 DAYS ON THEN 14 DAYS OFF   ORAL
     Route: 048
     Dates: start: 20240216

REACTIONS (1)
  - Death [None]

NARRATIVE: CASE EVENT DATE: 20240504
